FAERS Safety Report 7052785-6 (Version None)
Quarter: 2010Q4

REPORT INFORMATION
  Report Type: 
  Country: None (occurrence: None)
  Receive Date: 20101014
  Receipt Date: 20101006
  Transmission Date: 20110411
  Serious: Yes (Hospitalization)
  Sender: FDA-Public Use
  Company Number: 2009-189353-NL

PATIENT
  Age: 23 Year
  Sex: Female

DRUGS (4)
  1. NUVARING [Suspect]
     Indication: CONTRACEPTION
     Dosage: 1 DF
     Dates: start: 20030601, end: 20030701
  2. NUVARING [Suspect]
     Indication: MENSTRUAL DISORDER
     Dosage: 1 DF
     Dates: start: 20030601, end: 20030701
  3. RETIN-A [Concomitant]
  4. BENTYL [Concomitant]

REACTIONS (15)
  - ABORTION SPONTANEOUS [None]
  - ASTHMA [None]
  - BRONCHITIS [None]
  - CONTUSION [None]
  - CYST [None]
  - HAEMORRHAGE [None]
  - INSOMNIA [None]
  - INTERNATIONAL NORMALISED RATIO DECREASED [None]
  - IRRITABLE BOWEL SYNDROME [None]
  - PALPITATIONS [None]
  - PULMONARY EMBOLISM [None]
  - RESPIRATORY DISORDER [None]
  - SINUS BRADYCARDIA [None]
  - SINUSITIS [None]
  - VULVOVAGINAL CANDIDIASIS [None]
